FAERS Safety Report 6790889-3 (Version None)
Quarter: 2010Q2

REPORT INFORMATION
  Report Type: 
  Country: None (occurrence: None)
  Receive Date: 20100624
  Receipt Date: 20100617
  Transmission Date: 20101027
  Serious: Yes (Hospitalization)
  Sender: FDA-Public Use
  Company Number: B0657757A

PATIENT
  Sex: Female

DRUGS (20)
  1. AUGMENTIN '125' [Suspect]
     Indication: PROPHYLAXIS
     Route: 042
     Dates: start: 20100517, end: 20100517
  2. ATRACURIUM [Suspect]
     Dosage: 30MG PER DAY
     Route: 042
     Dates: start: 20100517, end: 20100517
  3. PROPOFOL [Suspect]
     Route: 065
     Dates: start: 20100517, end: 20100517
  4. SUFENTA PRESERVATIVE FREE [Suspect]
     Route: 042
     Dates: start: 20100517, end: 20100517
  5. NEURONTIN [Suspect]
     Indication: PREMEDICATION
     Dosage: 600MG PER DAY
     Route: 048
     Dates: start: 20100517, end: 20100517
  6. BETADINE [Suspect]
     Indication: PREOPERATIVE CARE
     Route: 061
     Dates: start: 20100516, end: 20100517
  7. NAROPIN [Suspect]
     Indication: DRUG USE FOR UNKNOWN INDICATION
     Route: 026
     Dates: start: 20100517, end: 20100517
  8. DROPERIDOL [Suspect]
     Indication: DRUG USE FOR UNKNOWN INDICATION
     Route: 042
     Dates: start: 20100517, end: 20100517
  9. LOVENOX [Suspect]
     Indication: PREMEDICATION
     Dosage: .4ML PER DAY
     Route: 058
     Dates: start: 20100517, end: 20100518
  10. KETAMINE [Suspect]
     Dosage: 10MCG PER DAY
     Route: 042
     Dates: start: 20100517, end: 20100517
  11. SEVORANE [Suspect]
     Route: 055
     Dates: start: 20100517, end: 20100517
  12. BETADINE [Concomitant]
     Route: 067
     Dates: start: 20100517, end: 20100517
  13. DESOGESTREL AND ETHINYL ESTRADIOL [Concomitant]
     Route: 065
  14. FLURBIPROFEN [Concomitant]
     Route: 065
     Dates: end: 20100501
  15. DONORMYL [Concomitant]
     Route: 065
  16. PARACETAMOL [Concomitant]
     Route: 065
  17. RINGER'S [Concomitant]
     Route: 065
     Dates: start: 20100517
  18. 5% GLUCOSE SOLUTION [Concomitant]
     Route: 065
     Dates: start: 20100517
  19. ACUPAN [Concomitant]
     Route: 065
     Dates: start: 20100517
  20. PERFALGAN [Concomitant]
     Route: 065
     Dates: start: 20100517

REACTIONS (3)
  - HAEMATURIA [None]
  - PRODUCT QUALITY ISSUE [None]
  - RENAL FAILURE ACUTE [None]
